FAERS Safety Report 8623286-6 (Version None)
Quarter: 2012Q3

REPORT INFORMATION
  Report Type: 
  Country: None (occurrence: None)
  Receive Date: 20120824
  Receipt Date: 20120824
  Transmission Date: 20120928
  Serious: No
  Sender: FDA-Public Use
  Company Number: None

PATIENT
  Sex: Female
  Weight: 53.5244 kg

DRUGS (2)
  1. ESCITALOPRAM [Suspect]
     Indication: ANXIETY
     Dosage: 20MG DAILY ORAL
     Route: 048
  2. ESCITALOPRAM [Suspect]
     Indication: MAJOR DEPRESSION
     Dosage: 20MG DAILY ORAL
     Route: 048

REACTIONS (7)
  - NAUSEA [None]
  - TREMOR [None]
  - IRRITABILITY [None]
  - HEADACHE [None]
  - FATIGUE [None]
  - VOMITING [None]
  - PRODUCT SUBSTITUTION ISSUE [None]
